FAERS Safety Report 8122266-7 (Version None)
Quarter: 2012Q1

REPORT INFORMATION
  Report Type: 
  Country: None (occurrence: None)
  Receive Date: 20120208
  Receipt Date: 20120127
  Transmission Date: 20120608
  Serious: Yes (Hospitalization)
  Sender: FDA-Public Use
  Company Number: DE-ELI_LILLY_AND_COMPANY-DE201201008276

PATIENT
  Sex: Female

DRUGS (4)
  1. LEVOTHYROXINE SODIUM [Concomitant]
     Dosage: 25 UG, UNK
  2. FORTEO [Suspect]
     Indication: OSTEOPOROSIS
     Dosage: UNK, QD
     Route: 058
     Dates: start: 20100713, end: 20111101
  3. INSIDON [Concomitant]
     Indication: ANXIETY
  4. DEKRISTOL [Concomitant]
     Dosage: UNK, 2/M

REACTIONS (1)
  - MYOCARDIAL INFARCTION [None]
